FAERS Safety Report 16601467 (Version 1)
Quarter: 2019Q3

REPORT INFORMATION
  Report Type: Spontaneous
  Country: IT (occurrence: IT)
  Receive Date: 20190720
  Receipt Date: 20190720
  Transmission Date: 20191004
  Serious: Yes (Life-Threatening, Other)
  Sender: FDA-Public Use
  Company Number: IT-AMGEN-ITASP2019114492

PATIENT

DRUGS (4)
  1. CARFILZOMIB [Suspect]
     Active Substance: CARFILZOMIB
     Indication: PLASMA CELL MYELOMA
     Dosage: 20 MILLIGRAM/SQ. METER (30 MIN) ON DAYS 1 AND 2
     Route: 042
     Dates: start: 201611
  2. REVLIMID [Concomitant]
     Active Substance: LENALIDOMIDE
     Indication: PLASMA CELL MYELOMA
     Dosage: 25 MILLIGRAM, QD, ON DAYS 1-21 OF EACH 28 DAY CYCLE
     Route: 048
  3. DEXAMETHASONE. [Concomitant]
     Active Substance: DEXAMETHASONE
     Indication: PLASMA CELL MYELOMA
     Dosage: 20 MILLIGRAM ON DAYS 1, 2, 8, 9, 15, AND 16
  4. CARFILZOMIB [Suspect]
     Active Substance: CARFILZOMIB
     Dosage: 27 MILLIGRAM/SQ. METER ON DAYS 8, 9, 15, AND 16 OF THE FIRST CYCLE
     Route: 042

REACTIONS (19)
  - Pulmonary toxicity [Unknown]
  - Nephropathy toxic [Unknown]
  - Nasal disorder [Unknown]
  - Diabetes mellitus [Unknown]
  - Neutropenia [Unknown]
  - Neurotoxicity [Unknown]
  - Angiopathy [Unknown]
  - Pneumonia [Unknown]
  - Thrombocytopenia [Unknown]
  - Laryngeal disorder [Unknown]
  - Gastrointestinal toxicity [Unknown]
  - Pharyngeal disorder [Unknown]
  - Ototoxicity [Unknown]
  - Anaemia [Unknown]
  - Skin toxicity [Unknown]
  - Fatigue [Unknown]
  - Hepatotoxicity [Unknown]
  - Eye disorder [Unknown]
  - Musculoskeletal disorder [Unknown]
